FAERS Safety Report 12960141 (Version 1)
Quarter: 2016Q4

REPORT INFORMATION
  Report Type: Report from Study
  Country: None (occurrence: PA)
  Receive Date: 20161121
  Receipt Date: 20161121
  Transmission Date: 20170207
  Serious: Yes (Death, Hospitalization, Other)
  Sender: FDA-Public Use
  Company Number: PA-ABBVIE-16P-125-1784652-00

PATIENT
  Age: 65 Year
  Sex: Male

DRUGS (1)
  1. ZEMPLAR [Suspect]
     Active Substance: PARICALCITOL
     Indication: HYPERPARATHYROIDISM SECONDARY
     Route: 042
     Dates: start: 20091201, end: 20160831

REACTIONS (9)
  - Dizziness [Unknown]
  - Asthenia [Unknown]
  - Death [Fatal]
  - Hypoglycaemia [Unknown]
  - Seizure [Unknown]
  - Headache [Unknown]
  - Melaena [Unknown]
  - Haematemesis [Unknown]
  - Cough [Unknown]

NARRATIVE: CASE EVENT DATE: 20161029
